FAERS Safety Report 4295037-X (Version None)
Quarter: 2004Q1

REPORT INFORMATION
  Report Type: 
  Country: None (occurrence: None)
  Receive Date: 20040213
  Receipt Date: 20040203
  Transmission Date: 20041129
  Serious: Yes (Hospitalization)
  Sender: FDA-Public Use
  Company Number: PANC00304000319

PATIENT
  Age: 62 Year
  Sex: Female
  Weight: 53 kg

DRUGS (3)
  1. CREON 25000 (PANCREATIN) [Suspect]
     Indication: ILL-DEFINED DISORDER
     Dosage: 3 DF QD PO
     Route: 048
  2. BUSPAR [Suspect]
     Indication: ILL-DEFINED DISORDER
     Dosage: 2 DF QD PO
     Route: 048
  3. SEROPRAM (CITALOPRAM HYDROBROMIDE) [Suspect]
     Indication: ILL-DEFINED DISORDER
     Dosage: 1 DF QD PO
     Route: 048

REACTIONS (4)
  - ARTHRALGIA [None]
  - CONJUNCTIVITIS [None]
  - CUTANEOUS VASCULITIS [None]
  - VASCULITIS [None]
